FAERS Safety Report 19174245 (Version 1)
Quarter: 2021Q2

REPORT INFORMATION
  Report Type: Spontaneous
  Country: IT (occurrence: IT)
  Receive Date: 20210423
  Receipt Date: 20210423
  Transmission Date: 20210717
  Serious: Yes (Other)
  Sender: FDA-Public Use
  Company Number: IT-CELGENEUS-ITA-20210403285

PATIENT
  Age: 48 Year
  Sex: Male
  Weight: 69 kg

DRUGS (4)
  1. GEMCITABINE. [Suspect]
     Active Substance: GEMCITABINE
     Indication: PANCREATIC CARCINOMA STAGE IV
     Dosage: CYCLICAL?100 MG/ML CONCENTRATION FOR SOLUTION PER INFUSION
     Route: 042
     Dates: start: 20210126
  2. CISPLATINO ACCORD [Concomitant]
     Active Substance: CISPLATIN
     Indication: PANCREATIC CARCINOMA STAGE IV
     Dosage: HEALTHCARE ITALIA 1 MG/ML, CONCENTRATION FOR SOLUTION
     Route: 042
     Dates: start: 20200126
  3. CAPECITABINE ACCORD [Concomitant]
     Active Substance: CAPECITABINE
     Indication: PANCREATIC CARCINOMA STAGE IV
     Route: 048
     Dates: start: 20210225
  4. ABRAXANE [Suspect]
     Active Substance: PACLITAXEL
     Indication: PANCREATIC CARCINOMA STAGE IV
     Dosage: CYCLICAL
     Route: 042
     Dates: start: 20210126

REACTIONS (2)
  - Neutrophilia [Unknown]
  - Neutropenia [Unknown]

NARRATIVE: CASE EVENT DATE: 20210401
